FAERS Safety Report 18135389 (Version 1)
Quarter: 2020Q3

REPORT INFORMATION
  Report Type: Spontaneous
  Country: US (occurrence: US)
  Receive Date: 20200810
  Receipt Date: 20200810
  Transmission Date: 20201103
  Serious: Yes (Hospitalization)
  Sender: FDA-Public Use
  Company Number: None

PATIENT
  Age: 49 Year
  Sex: Female

DRUGS (1)
  1. OPSUMIT [Suspect]
     Active Substance: MACITENTAN
     Indication: PULMONARY ARTERIAL HYPERTENSION
     Route: 048
     Dates: start: 20151028

REACTIONS (9)
  - Hypotension [None]
  - Hepatic haematoma [None]
  - Dyspnoea [None]
  - Anaemia [None]
  - Nausea [None]
  - Oliguria [None]
  - Vomiting [None]
  - Hypoxia [None]
  - Pulmonary arterial hypertension [None]

NARRATIVE: CASE EVENT DATE: 20200713
